FAERS Safety Report 13921733 (Version 3)
Quarter: 2017Q4

REPORT INFORMATION
  Report Type: Report from Study
  Country: US (occurrence: US)
  Receive Date: 20170830
  Receipt Date: 20171002
  Transmission Date: 20180320
  Serious: Yes (Other)
  Sender: FDA-Public Use
  Company Number: US-PFIZER INC-2017345023

PATIENT
  Age: 59 Year
  Sex: Female

DRUGS (1)
  1. IBRANCE [Suspect]
     Active Substance: PALBOCICLIB
     Indication: BREAST CANCER
     Dosage: 125 MG, DAILY
     Route: 048
     Dates: start: 20170729

REACTIONS (16)
  - Dizziness [Not Recovered/Not Resolved]
  - Hypertension [Unknown]
  - Dysgeusia [Unknown]
  - Productive cough [Unknown]
  - Thrombocytopenia [Unknown]
  - Anxiety [Unknown]
  - Diarrhoea [Unknown]
  - Neutropenia [Unknown]
  - Pollakiuria [Unknown]
  - Upper respiratory tract infection [Unknown]
  - Contusion [Unknown]
  - Chest discomfort [Unknown]
  - Pain in extremity [Unknown]
  - Hypokalaemia [Not Recovered/Not Resolved]
  - Hot flush [Not Recovered/Not Resolved]
  - Epistaxis [Not Recovered/Not Resolved]

NARRATIVE: CASE EVENT DATE: 2017
